FAERS Safety Report 14639885 (Version 2)
Quarter: 2018Q2

REPORT INFORMATION
  Report Type: Spontaneous
  Country: US (occurrence: US)
  Receive Date: 20180315
  Receipt Date: 20180517
  Transmission Date: 20180711
  Serious: Yes (Other)
  Sender: FDA-Public Use
  Company Number: US-ROCHE-2086574

PATIENT
  Age: 59 Year
  Sex: Male
  Weight: 63.6 kg

DRUGS (8)
  1. AMBIEN [Concomitant]
     Active Substance: ZOLPIDEM TARTRATE
     Dosage: QHS, PRN
     Route: 048
  2. SOLU-MEDROL [Concomitant]
     Active Substance: METHYLPREDNISOLONE SODIUM SUCCINATE
     Indication: MULTIPLE SCLEROSIS
     Dosage: SOL INFUSION?PER DAY X 2 DAYS
     Route: 042
  3. NORCO [Concomitant]
     Active Substance: ACETAMINOPHEN\HYDROCODONE BITARTRATE
     Dosage: 7.5-325 MG?Q 6 HOURS PRN
     Route: 048
  4. DIAZEPAM. [Concomitant]
     Active Substance: DIAZEPAM
     Dosage: AS NEEDED
     Route: 065
  5. OCREVUS [Suspect]
     Active Substance: OCRELIZUMAB
     Dosage: UNKNOWN
     Route: 042
     Dates: start: 20171011
  6. LOSARTAN K [Concomitant]
     Active Substance: LOSARTAN POTASSIUM
     Dosage: HCTZ?100-12.5 MG TAB?1/2 TAB
     Route: 065
  7. OCREVUS [Suspect]
     Active Substance: OCRELIZUMAB
     Route: 042
  8. OCREVUS [Suspect]
     Active Substance: OCRELIZUMAB
     Indication: RELAPSING-REMITTING MULTIPLE SCLEROSIS
     Dosage: UNKNOWN?FOLLOWED 15 DAYS LATER WITH 300 MG
     Route: 042
     Dates: start: 20170926

REACTIONS (11)
  - Urinary incontinence [Unknown]
  - Paraesthesia [Unknown]
  - Muscle spasticity [Unknown]
  - Neuralgia [Unknown]
  - Melanocytic naevus [Recovered/Resolved]
  - Anal incontinence [Unknown]
  - Arthralgia [Unknown]
  - Gait disturbance [Unknown]
  - Malignant melanoma [Unknown]
  - Dry mouth [Unknown]
  - Muscle atrophy [Unknown]

NARRATIVE: CASE EVENT DATE: 20180228
